FAERS Safety Report 4452096-9 (Version None)
Quarter: 2004Q3

REPORT INFORMATION
  Report Type: 
  Country: None (occurrence: None)
  Receive Date: 20040916
  Receipt Date: 20040906
  Transmission Date: 20050211
  Serious: Yes (Hospitalization)
  Sender: FDA-Public Use
  Company Number: JP-JNJFOC-20040606152

PATIENT
  Sex: Female
  Weight: 57 kg

DRUGS (17)
  1. REMICADE [Suspect]
     Route: 042
  2. REMICADE [Suspect]
     Route: 042
  3. REMICADE [Suspect]
     Route: 042
  4. REMICADE [Suspect]
     Indication: RHEUMATOID ARTHRITIS
     Route: 042
  5. METHOTREXATE [Suspect]
  6. METHOTREXATE [Suspect]
  7. METHOTREXATE [Suspect]
  8. METHOTREXATE [Suspect]
     Indication: RHEUMATOID ARTHRITIS
  9. PREDNISONE [Suspect]
     Indication: RHEUMATOID ARTHRITIS
  10. RIMATIL [Suspect]
     Indication: RHEUMATOID ARTHRITIS
     Route: 049
  11. PREDONIN [Concomitant]
     Route: 049
  12. PREDONIN [Concomitant]
     Indication: RHEUMATOID ARTHRITIS
     Route: 049
  13. RISCHIL [Concomitant]
     Indication: RHEUMATOID ARTHRITIS
     Route: 049
  14. VOLTAREN [Concomitant]
     Indication: RHEUMATOID ARTHRITIS
     Route: 049
  15. CYTOTEC [Concomitant]
     Route: 049
  16. GASTAR [Concomitant]
     Route: 049
  17. CALCITRIOL [Concomitant]
     Indication: OSTEOPOROSIS
     Route: 049

REACTIONS (6)
  - ASCITES [None]
  - CULTURE POSITIVE [None]
  - CYTOMEGALOVIRUS TEST POSITIVE [None]
  - NIGHT SWEATS [None]
  - PLEURAL EFFUSION [None]
  - PULMONARY TUBERCULOSIS [None]
